FAERS Safety Report 24893720 (Version 1)
Quarter: 2025Q1

REPORT INFORMATION
  Report Type: Report from Study
  Country: GB (occurrence: GB)
  Receive Date: 20250128
  Receipt Date: 20250128
  Transmission Date: 20250409
  Serious: Yes (Hospitalization, Other)
  Sender: AMGEN
  Company Number: GB-Vifor (International) Inc.-VIT-2024-06122

PATIENT
  Age: 31 Year
  Sex: Female
  Weight: 73.6 kg

DRUGS (12)
  1. AVACOPAN [Suspect]
     Active Substance: AVACOPAN
     Indication: Anti-neutrophil cytoplasmic antibody positive vasculitis
     Dosage: 30,MG,BID
     Route: 048
     Dates: start: 20240312
  2. ARIPIPRAZOLE [Concomitant]
     Active Substance: ARIPIPRAZOLE
     Indication: Major depression
     Dosage: 10 MILLIGRAM, QD
     Route: 048
  3. BECLOMETHASONE\FORMOTEROL [Concomitant]
     Active Substance: BECLOMETHASONE\FORMOTEROL
     Indication: Dyspnoea
     Dosage: 100 MICROGRAMS + 6 MICROGRAMS/ACTUATION INHALER, INHALATION 1 PUFF
     Route: 065
     Dates: start: 2023
  4. CALCIUM CARBONATE\CHOLECALCIFEROL [Concomitant]
     Active Substance: CALCIUM CARBONATE\CHOLECALCIFEROL
     Indication: Prophylaxis
     Dosage: 750MG PLUS 200 UNITS
     Route: 048
     Dates: start: 202312
  5. COTRIMOXAZOLE [Concomitant]
     Active Substance: SULFAMETHOXAZOLE\TRIMETHOPRIM
     Indication: Prophylaxis
     Dosage: 80MG PLUS 400MG
     Route: 048
     Dates: start: 20240312
  6. METFORMIN [Concomitant]
     Active Substance: METFORMIN HYDROCHLORIDE
     Indication: Weight control
     Dosage: 500,MG,BID
     Route: 048
  7. MIRTAZAPINE [Concomitant]
     Active Substance: MIRTAZAPINE
     Indication: Major depression
     Dosage: 30 MILLIGRAM, QD
     Route: 048
  8. OMEPRAZOLE [Concomitant]
     Active Substance: OMEPRAZOLE
     Indication: Prophylaxis
     Dosage: 20 MILLIGRAM, QD
     Route: 048
     Dates: start: 202312
  9. PREDNISOLONE [Concomitant]
     Active Substance: PREDNISOLONE
     Indication: Anti-neutrophil cytoplasmic antibody positive vasculitis
     Dosage: PARTICIPANT IN REMISSION
     Route: 048
     Dates: start: 20240227, end: 202403
  10. PREDNISOLONE [Concomitant]
     Active Substance: PREDNISOLONE
     Dosage: 12.5,MG,QD, COMPLETION OF PLANNED COURSE
     Route: 048
     Dates: start: 202403
  11. PREDNISOLONE [Concomitant]
     Active Substance: PREDNISOLONE
     Dosage: 10 ,MG,QD, COMPLETION OF PLANNED COURSE
     Route: 048
     Dates: start: 20240924, end: 202412
  12. PREDNISOLONE [Concomitant]
     Active Substance: PREDNISOLONE
     Dosage: 7.5 ,MG,QD, COMPLETION OF PLANNED COURSE
     Route: 048
     Dates: start: 202412

REACTIONS (8)
  - Dyspnoea [Recovered/Resolved]
  - Dyspnoea [Not Recovered/Not Resolved]
  - Laryngeal stenosis [Recovering/Resolving]
  - Laryngeal stenosis [Recovered/Resolved]
  - Laryngeal stenosis [Recovered/Resolved]
  - COVID-19 [Recovered/Resolved]
  - Iron deficiency anaemia [Unknown]
  - Urinary tract infection [Recovered/Resolved]

NARRATIVE: CASE EVENT DATE: 20240301
